FAERS Safety Report 20648853 (Version 8)
Quarter: 2024Q1

REPORT INFORMATION
  Report Type: Spontaneous
  Country: US (occurrence: US)
  Receive Date: 20220329
  Receipt Date: 20240322
  Transmission Date: 20240409
  Serious: No
  Sender: FDA-Public Use
  Company Number: US-PFIZER INC-2019419067

PATIENT
  Age: 81 Year
  Sex: Female
  Weight: 53.061 kg

DRUGS (5)
  1. PREMARIN [Suspect]
     Active Substance: ESTROGENS, CONJUGATED
     Indication: Urinary incontinence
     Dosage: UNK, 2X/WEEK (1/2 APPLICATOR FULL INTRA VAGINALLY TWICE PER WEEK 3 REFILLS)
     Route: 067
  2. PREMARIN [Suspect]
     Active Substance: ESTROGENS, CONJUGATED
     Dosage: APPLIED 2 X A WEEK AND AS NEEDED.
     Route: 067
  3. DIAZEPAM [Concomitant]
     Active Substance: DIAZEPAM
     Indication: Meniere^s disease
     Dosage: UNK
  4. TYLENOL [Concomitant]
     Active Substance: ACETAMINOPHEN
     Indication: Back disorder
     Dosage: UNK
  5. PREMARIN [Concomitant]
     Active Substance: ESTROGENS, CONJUGATED
     Dosage: UNK

REACTIONS (4)
  - Memory impairment [Unknown]
  - Intentional product misuse [Unknown]
  - Off label use [Unknown]
  - Product prescribing error [Unknown]
